FAERS Safety Report 7484158-6 (Version None)
Quarter: 2011Q2

REPORT INFORMATION
  Report Type: 
  Country: None (occurrence: None)
  Receive Date: 20110517
  Receipt Date: 20110504
  Transmission Date: 20111010
  Serious: Yes (Congenital Anomaly)
  Sender: FDA-Public Use
  Company Number: DK-ELI_LILLY_AND_COMPANY-DK201104006411

PATIENT

DRUGS (2)
  1. CYMBALTA [Suspect]
     Dosage: 30 MG, QD
     Route: 064
  2. CYMBALTA [Suspect]
     Indication: EATING DISORDER
     Dosage: 30 MG, QD
     Route: 064

REACTIONS (3)
  - CONGENITAL ANOMALY [None]
  - DRUG EXPOSURE DURING PREGNANCY [None]
  - IRIS COLOBOMA [None]
